FAERS Safety Report 24138673 (Version 1)
Quarter: 2024Q3

REPORT INFORMATION
  Report Type: Spontaneous
  Country: IN (occurrence: IN)
  Receive Date: 20240725
  Receipt Date: 20240725
  Transmission Date: 20241016
  Serious: Yes (Hospitalization)
  Sender: PRINSTON PHARMACEUTICAL
  Company Number: IN-PRINSTON PHARMACEUTICAL INC.-2024PRN00278

PATIENT
  Age: 55 Year
  Sex: Male

DRUGS (1)
  1. METFORMIN HYDROCHLORIDE [Suspect]
     Active Substance: METFORMIN HYDROCHLORIDE
     Dosage: 1000 MG, 1X/DAY

REACTIONS (3)
  - Toxic encephalopathy [Recovered/Resolved]
  - Cytotoxic oedema [Recovered/Resolved]
  - Lactic acidosis [Recovered/Resolved]
